FAERS Safety Report 6104429-5 (Version None)
Quarter: 2009Q1

REPORT INFORMATION
  Report Type: 
  Country: None (occurrence: None)
  Receive Date: 20090305
  Receipt Date: 20090224
  Transmission Date: 20090719
  Serious: Yes (Other)
  Sender: FDA-Public Use
  Company Number: US-JNJFOC-20090206309

PATIENT
  Sex: Female
  Weight: 76.2 kg

DRUGS (16)
  1. TOPAMAX [Suspect]
     Route: 048
  2. TOPAMAX [Suspect]
     Route: 048
  3. TOPAMAX [Suspect]
     Indication: MIGRAINE PROPHYLAXIS
     Route: 048
  4. ARTANE [Concomitant]
     Indication: MIGRAINE
  5. NAVANE [Concomitant]
     Indication: MIGRAINE
  6. PROZAC [Concomitant]
     Indication: MIGRAINE
  7. NORTRIPTYLINE HCL [Concomitant]
     Indication: MIGRAINE
  8. NORVASC [Concomitant]
     Indication: MIGRAINE
  9. AXERT [Concomitant]
     Indication: MIGRAINE
  10. PHRENILIN [Concomitant]
     Indication: MIGRAINE
  11. ZETIA [Concomitant]
     Indication: BLOOD CHOLESTEROL INCREASED
  12. TRICOR [Concomitant]
     Indication: BLOOD CHOLESTEROL INCREASED
  13. PREMARIN [Concomitant]
     Indication: HORMONE LEVEL ABNORMAL
  14. SYNTHROID [Concomitant]
     Indication: HORMONE LEVEL ABNORMAL
  15. EVOXAC [Concomitant]
     Indication: DRY MOUTH
  16. LUNESTA [Concomitant]
     Indication: SLEEP DISORDER

REACTIONS (6)
  - ASTHENIA [None]
  - CRYING [None]
  - FEELING ABNORMAL [None]
  - PARAESTHESIA [None]
  - SUICIDAL IDEATION [None]
  - WEIGHT INCREASED [None]
